FAERS Safety Report 11496561 (Version 3)
Quarter: 2016Q1

REPORT INFORMATION
  Report Type: Report from Study
  Country: US (occurrence: US)
  Receive Date: 20150911
  Receipt Date: 20160104
  Transmission Date: 20160525
  Serious: Yes (Hospitalization, Other)
  Sender: FDA-Public Use
  Company Number: US-BAYER-2015-113430

PATIENT
  Age: 49 Year
  Sex: Male
  Weight: 71 kg

DRUGS (13)
  1. FENTANYL. [Concomitant]
     Active Substance: FENTANYL
  2. MEGASE [Concomitant]
  3. VENLAFAXINE [Concomitant]
     Active Substance: VENLAFAXINE HYDROCHLORIDE
     Dosage: UNK
  4. NEXAVAR [Suspect]
     Active Substance: SORAFENIB
     Indication: HEPATOCELLULAR CARCINOMA
     Dosage: 200 MG, BID
     Route: 048
     Dates: start: 20150306, end: 20150514
  5. PROMETHAZINE [Concomitant]
     Active Substance: PROMETHAZINE\PROMETHAZINE HYDROCHLORIDE
  6. ROPINIROLE. [Concomitant]
     Active Substance: ROPINIROLE
  7. NEXAVAR [Suspect]
     Active Substance: SORAFENIB
     Indication: HEPATOCELLULAR CARCINOMA
     Dosage: 200 MG, BID
     Route: 048
     Dates: start: 20150212, end: 20150225
  8. NEXAVAR [Suspect]
     Active Substance: SORAFENIB
     Indication: HEPATOCELLULAR CARCINOMA
     Dosage: 200 MG, BID
     Route: 048
     Dates: start: 20151127, end: 201512
  9. NEXAVAR [Suspect]
     Active Substance: SORAFENIB
     Indication: HEPATOCELLULAR CARCINOMA
     Dosage: 200 MG, QD
     Route: 048
     Dates: start: 20150519, end: 20151102
  10. HYDROMORPHONE [Concomitant]
     Active Substance: HYDROMORPHONE
  11. MEGESTROL [Concomitant]
     Active Substance: MEGESTROL
  12. RABEPRAZOLE [Concomitant]
     Active Substance: RABEPRAZOLE
  13. DILAUDID [Concomitant]
     Active Substance: HYDROMORPHONE HYDROCHLORIDE

REACTIONS (13)
  - Pain in extremity [None]
  - Abdominal pain [None]
  - Oral mucosal blistering [None]
  - Intra-abdominal haemorrhage [Recovered/Resolved]
  - Skin lesion [None]
  - Hepatocellular carcinoma [None]
  - Haematocrit decreased [Recovered/Resolved]
  - Stomatitis [None]
  - Abdominal distension [Recovered/Resolved]
  - Hot flush [Recovered/Resolved]
  - Dysuria [None]
  - Syncope [Recovered/Resolved]
  - Blister [None]

NARRATIVE: CASE EVENT DATE: 201505
